FAERS Safety Report 6307901-8 (Version None)
Quarter: 2009Q3

REPORT INFORMATION
  Report Type: 
  Country: None (occurrence: None)
  Receive Date: 20090812
  Receipt Date: 20090812
  Transmission Date: 20100115
  Serious: Yes (Other)
  Sender: FDA-Public Use
  Company Number: None

PATIENT
  Sex: Female
  Weight: 97.977 kg

DRUGS (1)
  1. INAPSINE [Suspect]
     Indication: MIGRAINE
     Dates: start: 20090608, end: 20090608

REACTIONS (6)
  - ANXIETY [None]
  - DRUG INEFFECTIVE [None]
  - DYSSTASIA [None]
  - INSOMNIA [None]
  - PANIC ATTACK [None]
  - RESTLESSNESS [None]
